FAERS Safety Report 8781391 (Version 1)
Quarter: 2012Q4

REPORT INFORMATION
  Report Type: 
  Country: BR (occurrence: BR)
  Receive Date: 20120913
  Receipt Date: 20120913
  Transmission Date: 20130627
  Serious: Yes (Other)
  Sender: FDA-Public Use
  Company Number: PHHY2012BR077885

PATIENT
  Age: 58 Year
  Sex: Male

DRUGS (1)
  1. BUDESONIDE, FORMOTEROL FUMARATE [Suspect]
     Dosage: Twice a day

REACTIONS (6)
  - Diabetes mellitus [Unknown]
  - Dyspnoea [Unknown]
  - Weight increased [Unknown]
  - Decreased activity [Unknown]
  - Cough [Unknown]
  - Dyspnoea [None]
